FAERS Safety Report 20167254 (Version 1)
Quarter: 2021Q4

REPORT INFORMATION
  Report Type: Spontaneous
  Country: US (occurrence: None)
  Receive Date: 20211208
  Receipt Date: 20211208
  Transmission Date: 20220303
  Serious: Yes (Other)
  Sender: FDA-Public Use
  Company Number: None

PATIENT
  Age: 29 Year
  Sex: Female
  Weight: 63 kg

DRUGS (5)
  1. LAMOTRIGINE [Suspect]
     Active Substance: LAMOTRIGINE
     Indication: Schizoaffective disorder
     Dosage: FREQUENCY : TWICE A DAY;?
     Route: 048
     Dates: start: 20170101, end: 20211113
  2. topiramate 50 mg bid [Concomitant]
     Dates: start: 20170101, end: 20211113
  3. divalproex 250 mg q8 [Concomitant]
     Dates: start: 20211005
  4. quetiapine 500 mg once daily [Concomitant]
  5. bupropion 100 mg once daily [Concomitant]

REACTIONS (3)
  - Rash erythematous [None]
  - Pallor [None]
  - Stevens-Johnson syndrome [None]

NARRATIVE: CASE EVENT DATE: 20211113
